FAERS Safety Report 7450868-X (Version None)
Quarter: 2011Q2

REPORT INFORMATION
  Report Type: 
  Country: None (occurrence: None)
  Receive Date: 20110502
  Receipt Date: 20110428
  Transmission Date: 20111010
  Serious: Yes (Hospitalization, Other)
  Sender: FDA-Public Use
  Company Number: US-AMGEN-USASP2011018257

PATIENT
  Age: 66 Year
  Sex: Female
  Weight: 46.349 kg

DRUGS (19)
  1. CALCIUM [Concomitant]
     Dosage: 500 MG, UNK
  2. LISINOPRIL [Concomitant]
  3. SERTRALINE [Concomitant]
     Dosage: 50 MG, UNK
  4. BUSPIRONE HCL [Concomitant]
     Dosage: 20 MG, UNK
  5. COREG [Concomitant]
  6. OS-CAL                             /00108001/ [Concomitant]
  7. TRAVATAN [Concomitant]
     Route: 047
  8. CARBIDOPA AND LEVODOPA [Concomitant]
     Dosage: UNK
  9. SIMVASTATIN [Concomitant]
     Dosage: 80 UNK, UNK
  10. VITAMIN D [Concomitant]
     Dosage: 1000 IU, UNK
  11. HYDROXYCHLOROQUINE [Concomitant]
  12. CENTRUM                            /00554501/ [Concomitant]
  13. LEFLUNOMIDE [Concomitant]
  14. DRISDOL [Concomitant]
     Dosage: 50000 IU, UNK
  15. PREDNISONE [Concomitant]
  16. ASPIRIN [Concomitant]
     Dosage: 81 MG, UNK
  17. AMBIEN [Concomitant]
     Dosage: 10 MG, UNK
  18. PROLIA [Suspect]
     Indication: OSTEOPOROSIS
     Dosage: 60 MG, UNK
     Dates: start: 20101022, end: 20101022
  19. FISH OIL [Concomitant]
     Dosage: 1200 MG, UNK

REACTIONS (16)
  - PAIN IN EXTREMITY [None]
  - ADRENAL INSUFFICIENCY [None]
  - HYPOPHAGIA [None]
  - FLUID INTAKE REDUCED [None]
  - PLEURAL EFFUSION [None]
  - SEPSIS [None]
  - RENAL FAILURE ACUTE [None]
  - RENAL DISORDER [None]
  - ANAEMIA [None]
  - HYPOTENSION [None]
  - MUSCULOSKELETAL PAIN [None]
  - HAEMANGIOMA OF LIVER [None]
  - ABDOMINAL PAIN [None]
  - RENAL ATROPHY [None]
  - RHEUMATOID ARTHRITIS [None]
  - HYPOGLYCAEMIA [None]
